FAERS Safety Report 9026199 (Version 1)
Quarter: 2013Q1

REPORT INFORMATION
  Report Type: Spontaneous
  Country: US (occurrence: None)
  Receive Date: 20130108
  Receipt Date: 20130108
  Transmission Date: 20140127
  Serious: Yes (Other)
  Sender: FDA-Public Use
  Company Number: 2012AP004432

PATIENT
  Age: 57 Year
  Sex: Female

DRUGS (3)
  1. CETIRIZINE HYDROCHLORIDE [Suspect]
     Indication: URTICARIA
  2. FEXOFENADINE [Concomitant]
  3. RANITIDINE [Concomitant]

REACTIONS (9)
  - Hepatotoxicity [None]
  - Abdominal pain [None]
  - Diarrhoea [None]
  - Fatigue [None]
  - Headache [None]
  - Chromaturia [None]
  - Aspartate aminotransferase increased [None]
  - Alanine aminotransferase increased [None]
  - Blood alkaline phosphatase increased [None]
